FAERS Safety Report 13646725 (Version 5)
Quarter: 2018Q2

REPORT INFORMATION
  Report Type: Spontaneous
  Country: US (occurrence: US)
  Receive Date: 20170613
  Receipt Date: 20180427
  Transmission Date: 20180711
  Serious: Yes (Congenital Anomaly, Other)
  Sender: FDA-Public Use
  Company Number: PHEH2017US017762

PATIENT
  Sex: Male

DRUGS (2)
  1. ZOFRAN [Suspect]
     Active Substance: ONDANSETRON HYDROCHLORIDE
     Indication: FOETAL EXPOSURE DURING PREGNANCY
     Dosage: MOTHER^S DOSE: 4 MG, UNK
     Route: 064
  2. ONDANSETRON DR REDDY [Suspect]
     Active Substance: ONDANSETRON
     Indication: FOETAL EXPOSURE DURING PREGNANCY
     Dosage: MOTHER^S DOSE: 4 MG, QD
     Route: 064

REACTIONS (9)
  - Dysmorphism [Unknown]
  - Skull malformation [Unknown]
  - Foetal exposure during pregnancy [Unknown]
  - Oropharyngeal pain [Unknown]
  - Injury [Unknown]
  - Rash [Unknown]
  - Craniosynostosis [Unknown]
  - Hypotelorism of orbit [Unknown]
  - Rhinorrhoea [Unknown]
